FAERS Safety Report 9421748 (Version 1)
Quarter: 2013Q3

REPORT INFORMATION
  Report Type: Spontaneous
  Country: US (occurrence: US)
  Receive Date: 20130726
  Receipt Date: 20130726
  Transmission Date: 20140515
  Serious: Yes (Other)
  Sender: FDA-Public Use
  Company Number: US-AMGEN-USASP2013051002

PATIENT
  Sex: Female

DRUGS (1)
  1. PROLIA [Suspect]
     Indication: PRODUCT USED FOR UNKNOWN INDICATION

REACTIONS (8)
  - Heart rate irregular [Unknown]
  - Cardiac flutter [Unknown]
  - Heart sounds abnormal [Unknown]
  - Dizziness [Unknown]
  - Muscle spasms [Unknown]
  - Pain in extremity [Unknown]
  - Insomnia [Unknown]
  - Tension [Unknown]
